FAERS Safety Report 6706928-1 (Version None)
Quarter: 2010Q2

REPORT INFORMATION
  Report Type: 
  Country: None (occurrence: None)
  Receive Date: 20100503
  Receipt Date: 20100315
  Transmission Date: 20101027
  Serious: Yes (Death)
  Sender: FDA-Public Use
  Company Number: TH-ROCHE-700518

PATIENT
  Age: 28 Year
  Sex: Male

DRUGS (1)
  1. OSELTAMIVIR PHOSPHATE [Suspect]
     Indication: AVIAN INFLUENZA
     Route: 065
     Dates: start: 20060731, end: 20060803

REACTIONS (1)
  - DEATH [None]
